FAERS Safety Report 5318355-2 (Version None)
Quarter: 2007Q2

REPORT INFORMATION
  Report Type: 
  Country: None (occurrence: None)
  Receive Date: 20070507
  Receipt Date: 20070424
  Transmission Date: 20071010
  Serious: Yes (Hospitalization)
  Sender: FDA-Public Use
  Company Number: US-SHR-US-2007-005093

PATIENT
  Age: 43 Year
  Sex: Male
  Weight: 58.957 kg

DRUGS (8)
  1. BETASERON [Suspect]
     Indication: RELAPSING-REMITTING MULTIPLE SCLEROSIS
     Dosage: 8 MIU, EVERY 2D
     Route: 058
     Dates: start: 19950702, end: 20060801
  2. BETASERON [Suspect]
     Dosage: 8 MIU, EVERY 2D
     Route: 058
  3. LIPITOR [Concomitant]
     Dosage: UNK, QC
  4. PLAVIX [Concomitant]
     Dosage: UNK, QD
  5. ASPIRIN [Concomitant]
     Dosage: QD
  6. CLONAZEPAM [Concomitant]
     Indication: MUSCLE SPASMS
     Dosage: .5 MG, 2X/DAY
  7. DETROL [Concomitant]
     Dosage: 2 MG, 3X/DAY
  8. LISINOPRIL [Concomitant]
     Dosage: 2.5 MG/D, QD

REACTIONS (5)
  - ARTERIAL OCCLUSIVE DISEASE [None]
  - HYPOTENSION [None]
  - INFLUENZA LIKE ILLNESS [None]
  - INJECTION SITE ERYTHEMA [None]
  - MYOCARDIAL INFARCTION [None]
